FAERS Safety Report 18575002 (Version 2)
Quarter: 2020Q4

REPORT INFORMATION
  Report Type: Spontaneous
  Country: FR (occurrence: FR)
  Receive Date: 20201203
  Receipt Date: 20201218
  Transmission Date: 20210114
  Serious: Yes (Other)
  Sender: FDA-Public Use
  Company Number: FR-PFIZER INC-2020468588

PATIENT
  Age: 57 Year
  Sex: Male
  Weight: 50 kg

DRUGS (3)
  1. EUPANTOL [Interacting]
     Active Substance: PANTOPRAZOLE SODIUM
     Indication: GASTROOESOPHAGEAL REFLUX PROPHYLAXIS
     Dosage: 20 MG, 1X/DAY
     Route: 042
     Dates: start: 20201024
  2. HYPNOVEL [MIDAZOLAM HYDROCHLORIDE] [Interacting]
     Active Substance: MIDAZOLAM HYDROCHLORIDE
     Indication: ANXIETY
     Dosage: 0.2 MG, EVERY 1 HOUR
     Route: 042
     Dates: start: 20201105
  3. TRIFLUCAN [Suspect]
     Active Substance: FLUCONAZOLE
     Indication: FUNGAL INFECTION
     Dosage: 50 MG, 1X/DAY
     Route: 042
     Dates: start: 20201102

REACTIONS (1)
  - Drug chemical incompatibility [Recovered/Resolved]

NARRATIVE: CASE EVENT DATE: 20201105
